FAERS Safety Report 21033306 (Version 1)
Quarter: 2022Q3

REPORT INFORMATION
  Report Type: Spontaneous
  Country: ES (occurrence: None)
  Receive Date: 20220701
  Receipt Date: 20220701
  Transmission Date: 20221026
  Serious: Yes (Death)
  Sender: FDA-Public Use
  Company Number: 2022A236136

PATIENT
  Age: 88 Year
  Sex: Female
  Weight: 66 kg

DRUGS (6)
  1. DAPAGLIFLOZIN [Suspect]
     Active Substance: DAPAGLIFLOZIN
     Indication: Diabetes mellitus
     Route: 048
     Dates: start: 20190916
  2. XALATAN [Concomitant]
     Active Substance: LATANOPROST
     Indication: Glaucoma
     Dosage: 1 OPHTHALMIC DROP IN EACH EYE EVERY DAY 01/18/201
     Route: 047
     Dates: start: 20190118
  3. ARICEPT [Concomitant]
     Active Substance: DONEPEZIL HYDROCHLORIDE
     Indication: Dementia Alzheimer^s type
     Dosage: 1 TABLET AT NIGHT
     Route: 065
     Dates: start: 20191108
  4. FENTANYL [Concomitant]
     Active Substance: FENTANYL
     Indication: Soft tissue necrosis
     Dosage: 1 TRANSDERMAL PATCH EVERY 3 DAYS FOR 30 DAYS
     Route: 065
  5. COSOPT [Concomitant]
     Active Substance: DORZOLAMIDE HYDROCHLORIDE\TIMOLOL MALEATE
     Indication: Glaucoma
     Dosage: 1 OPHTHALMIC DROP IN EACH EYE EVERY 12 HOURS
     Route: 047
     Dates: start: 20190118
  6. SITAGLIPTIN [Concomitant]
     Active Substance: SITAGLIPTIN
     Indication: Diabetes mellitus
     Dosage: 1 TABLET EVERY DAY
     Dates: start: 20180611

REACTIONS (1)
  - Septic shock [Fatal]

NARRATIVE: CASE EVENT DATE: 20201201
